FAERS Safety Report 8365224-X (Version None)
Quarter: 2012Q2

REPORT INFORMATION
  Report Type: 
  Country: None (occurrence: None)
  Receive Date: 20120516
  Receipt Date: 20120501
  Transmission Date: 20120825
  Serious: Yes (Hospitalization)
  Sender: FDA-Public Use
  Company Number: US-BAXTER-2012BH007265

PATIENT
  Sex: Female

DRUGS (4)
  1. DIANEAL LOW CALCIUM W/ DEXTROSE 1.5% [Suspect]
     Indication: PERITONEAL DIALYSIS
     Route: 033
     Dates: start: 20060929
  2. DIANEAL [Suspect]
     Indication: PERITONEAL DIALYSIS
     Route: 033
     Dates: start: 20060929
  3. DIANEAL [Suspect]
     Route: 033
     Dates: start: 20060929
  4. DIANEAL [Suspect]
     Route: 033
     Dates: start: 20060929

REACTIONS (2)
  - INTESTINAL PERFORATION [None]
  - PERITONITIS [None]
